FAERS Safety Report 10211165 (Version 1)
Quarter: 2014Q2

REPORT INFORMATION
  Report Type: Report from Study
  Country: US (occurrence: US)
  Receive Date: 20140602
  Receipt Date: 20140602
  Transmission Date: 20141212
  Serious: No
  Sender: FDA-Public Use
  Company Number: US-ABBVIE-13P-163-1098664-00

PATIENT
  Sex: Male
  Weight: 63.56 kg

DRUGS (1)
  1. MARINOL [Suspect]
     Indication: CACHEXIA
     Route: 048
     Dates: start: 201302

REACTIONS (2)
  - Decreased appetite [Not Recovered/Not Resolved]
  - Drug ineffective [Not Recovered/Not Resolved]
